FAERS Safety Report 11642244 (Version 1)
Quarter: 2015Q4

REPORT INFORMATION
  Report Type: Spontaneous
  Country: US (occurrence: US)
  Receive Date: 20151019
  Receipt Date: 20151019
  Transmission Date: 20160304
  Serious: No
  Sender: FDA-Public Use
  Company Number: US-PFIZER INC-2015334400

PATIENT
  Age: 71 Year
  Sex: Female
  Weight: 118 kg

DRUGS (1)
  1. SUTENT [Suspect]
     Active Substance: SUNITINIB MALATE
     Indication: THYROID CANCER
     Dosage: 37.5 MG, 1X/DAY(1 CAP ONCE DAILY)
     Route: 048
     Dates: start: 20150425, end: 201509

REACTIONS (3)
  - Thyroid cancer [Unknown]
  - Product use issue [Unknown]
  - Disease progression [Unknown]
